FAERS Safety Report 18599039 (Version 1)
Quarter: 2020Q4

REPORT INFORMATION
  Report Type: Spontaneous
  Country: FR (occurrence: FR)
  Receive Date: 20201210
  Receipt Date: 20201210
  Transmission Date: 20210114
  Serious: Yes (Other)
  Sender: FDA-Public Use
  Company Number: FR-TEVA-2020-FR-1856153

PATIENT
  Age: 45 Year
  Sex: Male
  Weight: 87 kg

DRUGS (4)
  1. LEVOTHYROX [Concomitant]
     Active Substance: LEVOTHYROXINE
  2. ANDROTARDYL [Concomitant]
     Active Substance: TESTOSTERONE
  3. OCTREOTIDE TEVA [Suspect]
     Active Substance: OCTREOTIDE
     Indication: ACROMEGALY
     Dosage: 10 MG
     Route: 030
     Dates: start: 202006, end: 202011
  4. ZYMAD [Concomitant]
     Active Substance: CHOLECALCIFEROL

REACTIONS (3)
  - Gastrointestinal disorder [Recovered/Resolved]
  - Product substitution issue [Not Recovered/Not Resolved]
  - Injection site granuloma [Not Recovered/Not Resolved]

NARRATIVE: CASE EVENT DATE: 202006
